FAERS Safety Report 24096906 (Version 1)
Quarter: 2024Q3

REPORT INFORMATION
  Report Type: Report from Study
  Country: IT (occurrence: IT)
  Receive Date: 20240716
  Receipt Date: 20240716
  Transmission Date: 20241017
  Serious: Yes (Other)
  Sender: SANOFI AVENTIS
  Company Number: IT-SA-SAC20240620000202

PATIENT
  Age: 12 Year
  Sex: Male

DRUGS (3)
  1. AGALSIDASE BETA [Suspect]
     Active Substance: AGALSIDASE BETA
     Indication: Fabry^s disease
     Dosage: 2 DF (VIALS), QOW
     Route: 041
     Dates: start: 20240614, end: 20240614
  2. AGALSIDASE BETA [Suspect]
     Active Substance: AGALSIDASE BETA
     Dosage: 2 DF (VIALS), QOW
     Route: 041
     Dates: start: 20240626, end: 20240626
  3. AGALSIDASE BETA [Suspect]
     Active Substance: AGALSIDASE BETA
     Dosage: 2 DF (VIALS), QOW
     Route: 041
     Dates: start: 20240709, end: 20240709

REACTIONS (10)
  - Seizure [Recovered/Resolved]
  - Panic attack [Recovered/Resolved]
  - Fatigue [Recovered/Resolved]
  - Dyspnoea [Recovered/Resolved]
  - Hyperhidrosis [Recovered/Resolved]
  - Chest pain [Recovered/Resolved]
  - Blood pressure systolic increased [Recovered/Resolved]
  - Erythema [Recovered/Resolved]
  - Chills [Recovered/Resolved]
  - Blood pressure increased [Recovered/Resolved]

NARRATIVE: CASE EVENT DATE: 20240614
